FAERS Safety Report 8566738-X (Version None)
Quarter: 2012Q3

REPORT INFORMATION
  Report Type: 
  Country: None (occurrence: None)
  Receive Date: 20120803
  Receipt Date: 20111027
  Transmission Date: 20120928
  Serious: No
  Sender: FDA-Public Use
  Company Number: US-ABBOTT-11P-163-0869783-00

PATIENT
  Sex: Female
  Weight: 98.518 kg

DRUGS (15)
  1. NIASPAN [Suspect]
     Indication: CARDIAC DISORDER
     Route: 048
     Dates: start: 20110101, end: 20110101
  2. RANEXA [Concomitant]
     Indication: ANGINA PECTORIS
  3. NIASPAN [Suspect]
     Route: 048
     Dates: start: 20110101
  4. SENOFIDRATE [Concomitant]
     Indication: BLOOD TRIGLYCERIDES
  5. COREG CR [Concomitant]
     Indication: BLOOD PRESSURE
  6. SYNTHROID [Concomitant]
     Indication: THYROID DISORDER
  7. NITROSTAT [Concomitant]
     Indication: CHEST PAIN
  8. COZAAR [Concomitant]
     Indication: CARDIAC DISORDER
  9. CRESTOR [Concomitant]
     Indication: BLOOD CHOLESTEROL
  10. SENOFIDRATE [Concomitant]
     Indication: BLOOD CHOLESTEROL
  11. ZETIA [Concomitant]
     Indication: CARDIAC DISORDER
  12. PLAVIX [Concomitant]
     Indication: CARDIAC DISORDER
  13. NORVASC [Concomitant]
     Indication: BLOOD PRESSURE
  14. GLUCOPHAGE XR [Concomitant]
     Indication: DIABETES MELLITUS
  15. IMDUR [Concomitant]
     Indication: CARDIAC DISORDER

REACTIONS (1)
  - SKIN BURNING SENSATION [None]
